FAERS Safety Report 25439385 (Version 1)
Quarter: 2025Q2

REPORT INFORMATION
  Report Type: Spontaneous
  Country: US (occurrence: None)
  Receive Date: 20250613
  Receipt Date: 20250613
  Transmission Date: 20250717
  Serious: Yes (Hospitalization)
  Sender: FDA-CTU
  Company Number: None

PATIENT
  Age: 63 Year
  Sex: Female

DRUGS (1)
  1. ORENCIA [Suspect]
     Active Substance: ABATACEPT
     Indication: Juvenile idiopathic arthritis
     Dosage: 125MG WEEKLY ?

REACTIONS (7)
  - Muscle spasms [None]
  - Gait inability [None]
  - Cardiac disorder [None]
  - Lung disorder [None]
  - Hypokalaemia [None]
  - Muscular weakness [None]
  - Intentional dose omission [None]
